FAERS Safety Report 5342599-7 (Version None)
Quarter: 2007Q2

REPORT INFORMATION
  Report Type: 
  Country: None (occurrence: None)
  Receive Date: 20070601
  Receipt Date: 20070427
  Transmission Date: 20071010
  Serious: No
  Sender: FDA-Public Use
  Company Number: A0644376A

PATIENT
  Age: 65 Year
  Sex: Female

DRUGS (7)
  1. AUGMENTIN XR [Suspect]
     Dosage: 1000MG TWICE PER DAY
     Route: 048
     Dates: start: 20070319
  2. LOVASTATIN [Concomitant]
  3. ESTRACE [Concomitant]
  4. ASPIRIN [Concomitant]
  5. MULTIVITAMIN [Concomitant]
  6. CHLOR-TRIMETON [Concomitant]
  7. METFORMIN HCL [Concomitant]

REACTIONS (2)
  - DRUG INEFFECTIVE [None]
  - MEDICATION ERROR [None]
